FAERS Safety Report 14938026 (Version 1)
Quarter: 2018Q2

REPORT INFORMATION
  Report Type: Spontaneous
  Country: CA (occurrence: CA)
  Receive Date: 20180525
  Receipt Date: 20180525
  Transmission Date: 20180711
  Serious: Yes (Hospitalization)
  Sender: FDA-Public Use
  Company Number: CA-PFIZER INC-2018203042

PATIENT
  Age: 67 Year
  Sex: Female

DRUGS (4)
  1. CHAMPIX [Suspect]
     Active Substance: VARENICLINE TARTRATE
     Dosage: 0.5 MG, DAILY IN THE MORNING
     Dates: start: 20180501, end: 20180503
  2. CHAMPIX [Suspect]
     Active Substance: VARENICLINE TARTRATE
     Dosage: 0.5 MG, 2X/DAY
     Dates: start: 20180504, end: 20180508
  3. CORTISONE [Concomitant]
     Active Substance: CORTISONE\HYDROCORTISONE
     Indication: LUNG DISORDER
     Dosage: UNK
  4. CHAMPIX [Suspect]
     Active Substance: VARENICLINE TARTRATE
     Dosage: 1 MG, UNK
     Dates: start: 20180509, end: 201805

REACTIONS (9)
  - Drug intolerance [Unknown]
  - Diarrhoea [Unknown]
  - Dizziness [Unknown]
  - Dyspnoea [Unknown]
  - Tremor [Unknown]
  - Pyrexia [Unknown]
  - Nausea [Unknown]
  - Fatigue [Unknown]
  - Vomiting [Unknown]

NARRATIVE: CASE EVENT DATE: 20180503
